FAERS Safety Report 10815109 (Version 1)
Quarter: 2015Q1

REPORT INFORMATION
  Report Type: Report from Study
  Country: FR (occurrence: FR)
  Receive Date: 20150218
  Receipt Date: 20150218
  Transmission Date: 20150721
  Serious: Yes (Hospitalization, Other)
  Sender: FDA-Public Use
  Company Number: FR-AMGEN-2014-1470

PATIENT
  Age: 71 Year
  Sex: Male
  Weight: 108 kg

DRUGS (15)
  1. MELPHALAN [Suspect]
     Active Substance: MELPHALAN
     Indication: PLASMA CELL MYELOMA
     Dosage: FREQ. TEXT: DAYS 1-4?
     Route: 048
     Dates: start: 20140401
  2. PREDNISONE. [Suspect]
     Active Substance: PREDNISONE
     Indication: PLASMA CELL MYELOMA
     Dosage: FREQ. TEXT: DAYS 1-4?
     Route: 048
     Dates: start: 20140401, end: 20140401
  3. EFFERALGAN [Concomitant]
     Active Substance: ACETAMINOPHEN
     Indication: ANALGESIC THERAPY
     Route: 048
     Dates: start: 20140201
  4. ATARAX [Concomitant]
     Active Substance: HYDROXYZINE\HYDROXYZINE HYDROCHLORIDE
     Indication: ANXIETY
     Dosage: 25 MG, AS NECESSARY
     Route: 048
     Dates: start: 20140422
  5. CARFILZOMIB [Suspect]
     Active Substance: CARFILZOMIB
     Dosage: FREQUENCY: 8 EVERY 42 DAYS; FREQ. TEXT: DAYS 1,2,8,9,22, 23,29, 30, EVERY 42DAYS
     Route: 042
     Dates: start: 20140512, end: 20140701
  6. ALLOPURINOL. [Concomitant]
     Active Substance: ALLOPURINOL
     Indication: GOUT
     Route: 048
     Dates: start: 1980
  7. ONDANSETRON [Concomitant]
     Active Substance: ONDANSETRON
     Indication: PREMEDICATION
     Dosage: 8 MG, AS NECESSARY
     Route: 042
     Dates: start: 20140401
  8. CARFILZOMIB [Suspect]
     Active Substance: CARFILZOMIB
     Indication: PLASMA CELL MYELOMA
     Dosage: FREQ. TEXT: DAYS 1,2
     Route: 042
     Dates: start: 20140401, end: 20140402
  9. ZELITREX [Concomitant]
     Active Substance: VALACYCLOVIR HYDROCHLORIDE
     Indication: ANTIVIRAL PROPHYLAXIS
     Route: 048
     Dates: start: 20140401
  10. CARFILZOMIB [Suspect]
     Active Substance: CARFILZOMIB
     Dosage: FREQUENCY: 6 EVERY 36 DAYS; FREQ. TEXT: DAYS 8,9,22,23,29, AND 30
     Route: 042
     Dates: start: 20140408, end: 20140501
  11. PARACETAMOL [Concomitant]
     Active Substance: ACETAMINOPHEN
     Indication: HEADACHE
     Route: 048
     Dates: start: 20140626, end: 20140629
  12. PREDNISONE. [Suspect]
     Active Substance: PREDNISONE
     Dosage: FREQ. TEXT: DAYS 1-4?
     Route: 048
     Dates: start: 20140402, end: 20140404
  13. PREDNISONE. [Suspect]
     Active Substance: PREDNISONE
     Dosage: FREQ. TEXT: DAYS 1-4?
     Route: 048
     Dates: start: 20140512
  14. CARFILZOMIB [Suspect]
     Active Substance: CARFILZOMIB
     Dosage: FREQUENCY: 8 EVERY 42 DAYS; FREQ. TEXT: DAYS 1,2,8,9,22, 23,29, 30, EVERY 42DAYS
     Route: 042
     Dates: start: 20140716
  15. BACTRIM [Concomitant]
     Active Substance: SULFAMETHOXAZOLE\TRIMETHOPRIM
     Indication: ANTIBIOTIC PROPHYLAXIS
     Route: 048
     Dates: start: 20140401

REACTIONS (2)
  - Infusion site extravasation [Recovered/Resolved]
  - Infusion site pain [Recovering/Resolving]

NARRATIVE: CASE EVENT DATE: 20140701
